FAERS Safety Report 7072937-9 (Version None)
Quarter: 2010Q4

REPORT INFORMATION
  Report Type: 
  Country: None (occurrence: None)
  Receive Date: 20101029
  Receipt Date: 20100402
  Transmission Date: 20110411
  Serious: No
  Sender: FDA-Public Use
  Company Number: A0853222A

PATIENT
  Age: 72 Year
  Sex: Male

DRUGS (7)
  1. ADVAIR DISKUS 100/50 [Suspect]
     Indication: COUGH
     Route: 055
     Dates: start: 20100401
  2. AUGMENTIN '125' [Concomitant]
  3. NEXIUM [Concomitant]
  4. TUSSIONEX [Concomitant]
  5. TUSSIONEX [Concomitant]
  6. ANTI-CHOLESTEROL MEDICATION [Concomitant]
  7. ASPIRIN [Concomitant]

REACTIONS (1)
  - RASH GENERALISED [None]
